FAERS Safety Report 12688372 (Version 2)
Quarter: 2016Q3

REPORT INFORMATION
  Report Type: Report from Study
  Country: US (occurrence: US)
  Receive Date: 20160826
  Receipt Date: 20160928
  Transmission Date: 20161109
  Serious: Yes (Other)
  Sender: FDA-Public Use
  Company Number: US-ROCHE-1818379

PATIENT
  Age: 32 Year
  Sex: Female

DRUGS (16)
  1. MONTELUKAST [Concomitant]
     Active Substance: MONTELUKAST SODIUM
     Route: 048
     Dates: start: 20160508
  2. ZOLPIDEM [Concomitant]
     Active Substance: ZOLPIDEM\ZOLPIDEM TARTRATE
     Route: 048
     Dates: start: 20160508
  3. ESOMEPRAZOL [Concomitant]
     Active Substance: ESOMEPRAZOLE
     Indication: GASTROOESOPHAGEAL REFLUX DISEASE
  4. EPINEPHRINE. [Concomitant]
     Active Substance: EPINEPHRINE
     Dosage: 0.3MG/.3ML
     Route: 050
  5. ALPRAZOLAM. [Concomitant]
     Active Substance: ALPRAZOLAM
     Route: 048
     Dates: start: 20160508
  6. SINGULAIR [Concomitant]
     Active Substance: MONTELUKAST SODIUM
     Indication: RHINITIS ALLERGIC
     Route: 048
  7. LEVOCETIRIZINE [Concomitant]
     Active Substance: LEVOCETIRIZINE
     Route: 048
     Dates: start: 20150508, end: 20151208
  8. ONDANSETRON [Concomitant]
     Active Substance: ONDANSETRON
     Route: 048
     Dates: start: 20150921
  9. CARISOPRODOL. [Concomitant]
     Active Substance: CARISOPRODOL
     Route: 048
     Dates: start: 20160508
  10. XOLAIR [Suspect]
     Active Substance: OMALIZUMAB
     Indication: ASTHMA
     Route: 058
     Dates: start: 20160513
  11. TRAMADOL. [Concomitant]
     Active Substance: TRAMADOL
     Route: 048
     Dates: start: 20150921
  12. BUDESONIDE/FORMOTEROL [Concomitant]
     Active Substance: BUDESONIDE\FORMOTEROL
     Dosage: 160-4.5 2PUFFS
     Route: 048
     Dates: start: 20160508
  13. ATENOLOL. [Concomitant]
     Active Substance: ATENOLOL
     Route: 048
     Dates: start: 20160508
  14. TRIAMCINOLONE ACETONIDE. [Concomitant]
     Active Substance: TRIAMCINOLONE ACETONIDE
     Route: 065
     Dates: start: 20150921, end: 20160118
  15. SYMBICORT [Concomitant]
     Active Substance: BUDESONIDE\FORMOTEROL FUMARATE DIHYDRATE
     Indication: ASTHMA
     Dosage: 2 PUFF
     Route: 065
  16. ALBUTEROL SULFATE. [Concomitant]
     Active Substance: ALBUTEROL SULFATE
     Dosage: 2-4PUFFS EVERY 4-6HRS
     Route: 065
     Dates: start: 20160508

REACTIONS (20)
  - Eye pruritus [Unknown]
  - Dysphagia [Unknown]
  - Pain in extremity [Unknown]
  - Feeling cold [Unknown]
  - Ear pain [Unknown]
  - Muscle spasms [Unknown]
  - Parosmia [Unknown]
  - Dysgeusia [Unknown]
  - Heart rate increased [Unknown]
  - Palpitations [Unknown]
  - Fatigue [Unknown]
  - Chest pain [Unknown]
  - Pharyngeal oedema [Recovered/Resolved]
  - Anaphylactic reaction [Unknown]
  - Nasal congestion [Unknown]
  - Snoring [Unknown]
  - Heart rate irregular [Unknown]
  - Headache [Unknown]
  - Increased tendency to bruise [Unknown]
  - Dysphonia [Unknown]

NARRATIVE: CASE EVENT DATE: 20160722
